FAERS Safety Report 22066580 (Version 1)
Quarter: 2023Q1

REPORT INFORMATION
  Report Type: Spontaneous
  Country: US (occurrence: US)
  Receive Date: 20230306
  Receipt Date: 20230306
  Transmission Date: 20230417
  Serious: No
  Sender: FDA-Public Use
  Company Number: US-MYLANLABS-2023M1021367

PATIENT

DRUGS (1)
  1. AMLODIPINE [Suspect]
     Active Substance: AMLODIPINE BESYLATE
     Indication: Hypertension
     Dosage: 5 MILLIGRAM, TID (IN MORNING 2 OF THE 5 MG TABLETS, NIGHT ABOUT 9 O^ CLOCK WHICH WAS THE 5 MG)
     Route: 065

REACTIONS (2)
  - Therapeutic product effect incomplete [Unknown]
  - Extra dose administered [Unknown]
